FAERS Safety Report 16124836 (Version 3)
Quarter: 2019Q2

REPORT INFORMATION
  Report Type: Report from Study
  Country: US (occurrence: US)
  Receive Date: 20190327
  Receipt Date: 20190405
  Transmission Date: 20190711
  Serious: Yes (Death, Hospitalization, Other)
  Sender: FDA-Public Use
  Company Number: US-GILEAD-2019-0399099

PATIENT
  Age: 87 Year
  Sex: Female

DRUGS (1)
  1. AMBRISENTAN [Suspect]
     Active Substance: AMBRISENTAN
     Indication: PULMONARY HYPERTENSION
     Dosage: 5 MG, QD
     Route: 065
     Dates: start: 20190215

REACTIONS (4)
  - Respiratory failure [Fatal]
  - Cardiac failure congestive [Unknown]
  - Cor pulmonale chronic [Unknown]
  - Influenza [Unknown]

NARRATIVE: CASE EVENT DATE: 20190320
